APPROVED DRUG PRODUCT: METOPROLOL SUCCINATE
Active Ingredient: METOPROLOL SUCCINATE
Strength: EQ 200MG TARTRATE
Dosage Form/Route: TABLET, EXTENDED RELEASE;ORAL
Application: A207206 | Product #004 | TE Code: AB
Applicant: VISUM PHARMACEUTICAL CO LTD
Approved: Dec 19, 2018 | RLD: No | RS: No | Type: RX